FAERS Safety Report 11282357 (Version 1)
Quarter: 2015Q3

REPORT INFORMATION
  Report Type: Spontaneous
  Country: US (occurrence: US)
  Receive Date: 20150720
  Receipt Date: 20150720
  Transmission Date: 20151125
  Serious: No
  Sender: FDA-Public Use
  Company Number: US-TEVA-553126USA

PATIENT
  Age: 54 Year
  Sex: Female

DRUGS (1)
  1. BACLOFEN. [Suspect]
     Active Substance: BACLOFEN
     Indication: MUSCLE SPASTICITY
     Dates: start: 20150329

REACTIONS (2)
  - Insomnia [Not Recovered/Not Resolved]
  - Oesophageal spasm [Not Recovered/Not Resolved]

NARRATIVE: CASE EVENT DATE: 20150329
